FAERS Safety Report 6040532-6 (Version None)
Quarter: 2009Q1

REPORT INFORMATION
  Report Type: 
  Country: None (occurrence: None)
  Receive Date: 20090116
  Receipt Date: 20080401
  Transmission Date: 20090719
  Serious: No
  Sender: FDA-Public Use
  Company Number: US-BRISTOL-MYERS SQUIBB COMPANY-14133243

PATIENT
  Age: 67 Year
  Sex: Female
  Weight: 62 kg

DRUGS (10)
  1. ABILIFY [Suspect]
     Indication: DEPRESSION
     Dates: start: 20080101, end: 20080101
  2. PLAQUENIL [Concomitant]
  3. LIPITOR [Concomitant]
  4. RITUXAN [Concomitant]
  5. METHOTREXATE [Concomitant]
  6. NEXIUM [Concomitant]
  7. XANAX [Concomitant]
  8. FOLIC ACID [Concomitant]
  9. NORVASC [Concomitant]
  10. ZANTAC [Concomitant]

REACTIONS (3)
  - BLOOD GLUCOSE INCREASED [None]
  - RASH [None]
  - WEIGHT INCREASED [None]
